FAERS Safety Report 16724169 (Version 3)
Quarter: 2019Q4

REPORT INFORMATION
  Report Type: Report from Study
  Country: None (occurrence: CA)
  Receive Date: 20190821
  Receipt Date: 20191205
  Transmission Date: 20200122
  Serious: Yes (Hospitalization)
  Sender: FDA-Public Use
  Company Number: CA-ABBVIE-19K-028-2890983-00

PATIENT
  Sex: Male

DRUGS (2)
  1. HUMIRA [Suspect]
     Active Substance: ADALIMUMAB
     Indication: CROHN^S DISEASE
     Route: 058
     Dates: start: 20151005
  2. HUMIRA [Suspect]
     Active Substance: ADALIMUMAB
     Route: 058
     Dates: start: 20190814, end: 2019

REACTIONS (6)
  - Small intestinal obstruction [Unknown]
  - Adhesion [Unknown]
  - Intestinal mass [Not Recovered/Not Resolved]
  - Crohn^s disease [Unknown]
  - Therapeutic product effect decreased [Unknown]
  - Enteritis [Not Recovered/Not Resolved]
